FAERS Safety Report 5049541-7 (Version None)
Quarter: 2006Q3

REPORT INFORMATION
  Report Type: 
  Country: None (occurrence: None)
  Receive Date: 20060712
  Receipt Date: 20030122
  Transmission Date: 20061208
  Serious: Yes (Hospitalization)
  Sender: FDA-Public Use
  Company Number: PHNU2003DE00661

PATIENT
  Age: 78 Year
  Sex: Male
  Weight: 85.5 kg

DRUGS (2)
  1. LAMISIL [Suspect]
     Indication: NAIL TINEA
     Dosage: 250 MG, QD
     Route: 048
     Dates: start: 20020829, end: 20020911
  2. AUGMENTIN '125' [Suspect]
     Indication: GASTROENTERITIS
     Route: 065
     Dates: start: 20020911, end: 20020919

REACTIONS (5)
  - AGEUSIA [None]
  - ANOSMIA [None]
  - GASTROENTERITIS BACTERIAL [None]
  - PNEUMONIA ASPIRATION [None]
  - REFLUX OESOPHAGITIS [None]
